FAERS Safety Report 8157812-0 (Version None)
Quarter: 2012Q1

REPORT INFORMATION
  Report Type: 
  Country: None (occurrence: None)
  Receive Date: 20120222
  Receipt Date: 20120209
  Transmission Date: 20120608
  Serious: No
  Sender: FDA-Public Use
  Company Number: US-B.I. PHARMACEUTICALS,INC./RIDGEFIELD-2012-BP-02538BP

PATIENT
  Sex: Female

DRUGS (8)
  1. NORVASC [Concomitant]
     Indication: HYPERTENSION
  2. PRADAXA [Suspect]
     Indication: ATRIAL FIBRILLATION
     Dosage: 300 MG
     Route: 048
     Dates: start: 20111201, end: 20120208
  3. RAMIPRIL [Concomitant]
     Indication: HYPERTENSION
  4. EYE GTTS [Concomitant]
     Indication: OPTIC NERVE INJURY
  5. FLECAINIDE ACETATE [Concomitant]
     Indication: ATRIAL FIBRILLATION
     Dates: start: 20100501
  6. LEVOTHYROXINE SODIUM [Concomitant]
     Indication: HYPOTHYROIDISM
  7. VYTORIN [Concomitant]
     Indication: BLOOD CHOLESTEROL INCREASED
  8. EYE GTTS [Concomitant]
     Indication: RETINAL INJURY

REACTIONS (2)
  - ANAL PRURITUS [None]
  - DIARRHOEA [None]
